FAERS Safety Report 9059740 (Version 4)
Quarter: 2013Q4

REPORT INFORMATION
  Report Type: Spontaneous
  Country: US (occurrence: US)
  Receive Date: 20130211
  Receipt Date: 20131122
  Transmission Date: 20140711
  Serious: Yes (Hospitalization, Other)
  Sender: FDA-Public Use
  Company Number: US-009507513-1302USA003411

PATIENT
  Sex: Female
  Weight: 54.42 kg

DRUGS (5)
  1. NUVARING [Suspect]
     Indication: CONTRACEPTION
     Dosage: UNK DF, QM
     Route: 067
     Dates: start: 20061215, end: 20070228
  2. FOLIC ACID [Concomitant]
  3. METHOTREXATE [Concomitant]
     Dosage: 10 MG, UNK
  4. PLAQUENIL [Concomitant]
     Indication: ARTHRALGIA
     Dosage: 200 MG, BID
     Dates: start: 2004
  5. PROTONIX [Concomitant]

REACTIONS (15)
  - Pulmonary embolism [Recovered/Resolved]
  - Arthralgia [Unknown]
  - Headache [Recovered/Resolved]
  - Contusion [Unknown]
  - Aspiration joint [Unknown]
  - Contusion [Recovering/Resolving]
  - Limb injury [Recovering/Resolving]
  - Arthralgia [Recovered/Resolved]
  - Joint swelling [Recovered/Resolved]
  - Paraesthesia [Recovered/Resolved]
  - Arthropathy [Unknown]
  - Dizziness [Unknown]
  - Fatigue [Unknown]
  - Arthralgia [Unknown]
  - Back pain [Not Recovered/Not Resolved]
